FAERS Safety Report 21416285 (Version 1)
Quarter: 2022Q4

REPORT INFORMATION
  Report Type: Spontaneous
  Country: US (occurrence: US)
  Receive Date: 20221006
  Receipt Date: 20221006
  Transmission Date: 20230112
  Serious: No
  Sender: FDA-Public Use
  Company Number: US-ALLERGAN-2209166US

PATIENT
  Sex: Female

DRUGS (1)
  1. VRAYLAR [Interacting]
     Active Substance: CARIPRAZINE
     Indication: Product used for unknown indication

REACTIONS (3)
  - Drug interaction [Unknown]
  - General physical condition abnormal [Unknown]
  - Encephalopathy [Unknown]
